FAERS Safety Report 18779269 (Version 1)
Quarter: 2021Q1

REPORT INFORMATION
  Report Type: Spontaneous
  Country: NL (occurrence: NL)
  Receive Date: 20210125
  Receipt Date: 20210125
  Transmission Date: 20210419
  Serious: Yes (Hospitalization, Other)
  Sender: FDA-Public Use
  Company Number: NL-AUROBINDO-AUR-APL-2021-002414

PATIENT
  Sex: Male
  Weight: 68 kg

DRUGS (1)
  1. VANCOMYCIN 1000MG POWDER FOR CONCENTRATE FOR SOLUTION FOR INFUSION [Suspect]
     Active Substance: VANCOMYCIN
     Indication: OSTEOMYELITIS
     Dosage: 1000 MILLIGRAM, FOUR TIMES/DAY
     Route: 065
     Dates: start: 2020

REACTIONS (1)
  - Acute kidney injury [Recovered/Resolved]
